FAERS Safety Report 23675257 (Version 3)
Quarter: 2024Q2

REPORT INFORMATION
  Report Type: Report from Study
  Country: CA (occurrence: CA)
  Receive Date: 20240327
  Receipt Date: 20240424
  Transmission Date: 20240716
  Serious: Yes (Hospitalization)
  Sender: FDA-Public Use
  Company Number: CA-ABBVIE-5690827

PATIENT
  Age: 73 Year
  Sex: Male
  Weight: 77 kg

DRUGS (8)
  1. VENETOCLAX [Suspect]
     Active Substance: VENETOCLAX
     Indication: Acute myeloid leukaemia
     Route: 048
     Dates: start: 20240318, end: 20240318
  2. VENETOCLAX [Suspect]
     Active Substance: VENETOCLAX
     Indication: Acute myeloid leukaemia
     Route: 048
     Dates: start: 20240319, end: 20240409
  3. COVID-19 vaccine mRNA [Concomitant]
     Indication: COVID-19 immunisation
     Dosage: TIME INTERVAL: TOTAL: FIRST VACCINATION
     Route: 030
  4. COVID-19 vaccine mRNA [Concomitant]
     Indication: COVID-19 immunisation
     Dosage: TIME INTERVAL: TOTAL: SECOND VACCINATION
     Route: 030
  5. COVID-19 vaccine mRNA [Concomitant]
     Indication: COVID-19 immunisation
     Dosage: TIME INTERVAL: TOTAL: THIRD VACCINATION
     Route: 030
  6. COVID-19 vaccine mRNA [Concomitant]
     Indication: COVID-19 immunisation
     Dosage: TIME INTERVAL: TOTAL: FOURTH VACCINATION
     Route: 030
  7. COVID-19 vaccine mRNA [Concomitant]
     Indication: COVID-19 immunisation
     Dosage: TIME INTERVAL: TOTAL: FIFTH VACCINATION
     Route: 030
  8. COVID-19 vaccine mRNA [Concomitant]
     Indication: COVID-19 immunisation
     Dosage: TIME INTERVAL: TOTAL: SIXTH VACCINATION
     Route: 030

REACTIONS (1)
  - Humerus fracture [Not Recovered/Not Resolved]

NARRATIVE: CASE EVENT DATE: 20240319
